FAERS Safety Report 10204054 (Version 1)
Quarter: 2014Q2

REPORT INFORMATION
  Report Type: Spontaneous
  Country: FR (occurrence: FR)
  Receive Date: 20140529
  Receipt Date: 20140529
  Transmission Date: 20141212
  Serious: Yes (Other)
  Sender: FDA-Public Use
  Company Number: FR-SA-2014SA066303

PATIENT
  Sex: 0

DRUGS (2)
  1. CLOPIDOGREL ZENTIVA [Suspect]
     Indication: TRANSIENT ISCHAEMIC ATTACK
     Route: 048
  2. CLOPIDOGREL ZENTIVA [Suspect]
     Indication: TRANSIENT ISCHAEMIC ATTACK
     Route: 048
     Dates: start: 201209

REACTIONS (2)
  - Transient ischaemic attack [Unknown]
  - Underdose [Unknown]
